FAERS Safety Report 4747757-8 (Version None)
Quarter: 2005Q3

REPORT INFORMATION
  Report Type: 
  Country: None (occurrence: None)
  Receive Date: 20050816
  Receipt Date: 20050719
  Transmission Date: 20060218
  Serious: Yes (Hospitalization)
  Sender: FDA-Public Use
  Company Number: 2005-01543

PATIENT
  Age: 77 Year
  Sex: Male
  Weight: 45 kg

DRUGS (1)
  1. VELCADE [Suspect]
     Indication: MULTIPLE MYELOMA
     Dosage: 1.43 MG, 2/WEEK, INTRAVENOUS
     Route: 042
     Dates: start: 20050530

REACTIONS (3)
  - GRAND MAL CONVULSION [None]
  - HAEMOGLOBIN DECREASED [None]
  - PLATELET COUNT DECREASED [None]
